FAERS Safety Report 5802316-0 (Version None)
Quarter: 2008Q3

REPORT INFORMATION
  Report Type: 
  Country: None (occurrence: None)
  Receive Date: 20080707
  Receipt Date: 20080701
  Transmission Date: 20090109
  Serious: Yes (Death, Hospitalization)
  Sender: FDA-Public Use
  Company Number: VE-SANOFI-SYNTHELABO-F01200801109

PATIENT
  Sex: Female

DRUGS (4)
  1. LOPERAMIDE HCL [Concomitant]
  2. LEUCOVORIN CALCIUM [Suspect]
     Dosage: UNK
     Route: 041
  3. FLUOROURACIL [Suspect]
     Dosage: UNK
     Route: 041
  4. OXALIPLATIN [Suspect]
     Indication: COLON CANCER
     Route: 041
     Dates: start: 20080521, end: 20080521

REACTIONS (4)
  - DIARRHOEA [None]
  - HYPOVOLAEMIC SHOCK [None]
  - NAUSEA [None]
  - VOMITING [None]
